FAERS Safety Report 4976788-8 (Version None)
Quarter: 2006Q2

REPORT INFORMATION
  Report Type: 
  Country: None (occurrence: None)
  Receive Date: 20060419
  Receipt Date: 20060405
  Transmission Date: 20061013
  Serious: Yes (Other)
  Sender: FDA-Public Use
  Company Number: US-ROCHE-443539

PATIENT
  Age: 63 Year
  Sex: Female

DRUGS (2)
  1. BONIVA [Suspect]
     Indication: DRUG USE FOR UNKNOWN INDICATION
     Route: 048
     Dates: start: 20060302, end: 20060302
  2. CRESTOR [Suspect]
     Indication: DRUG USE FOR UNKNOWN INDICATION
     Route: 048
     Dates: start: 20060315

REACTIONS (8)
  - ASTHENIA [None]
  - BACK PAIN [None]
  - CHEST DISCOMFORT [None]
  - CHEST PAIN [None]
  - CHOKING [None]
  - MULTIPLE SCLEROSIS [None]
  - MUSCLE SPASMS [None]
  - PHARYNGOLARYNGEAL PAIN [None]
